FAERS Safety Report 11126560 (Version 1)
Quarter: 2015Q2

REPORT INFORMATION
  Report Type: Report from Study
  Country: DE (occurrence: DE)
  Receive Date: 20150520
  Receipt Date: 20150520
  Transmission Date: 20150821
  Serious: Yes (Hospitalization)
  Sender: FDA-Public Use
  Company Number: DE-INCYTE CORPORATION-2015IN002117

PATIENT
  Sex: Female
  Weight: 53 kg

DRUGS (13)
  1. INCB018424 [Suspect]
     Active Substance: RUXOLITINIB
     Dosage: 25 MG, QD
     Route: 048
     Dates: start: 20130607, end: 20130711
  2. EXFORGE [Concomitant]
     Active Substance: AMLODIPINE BESYLATE\VALSARTAN
     Dosage: UNKNOWN
     Dates: start: 20130215
  3. INCB018424 [Suspect]
     Active Substance: RUXOLITINIB
     Dosage: 5 MG,QID
     Route: 048
     Dates: start: 20131108, end: 20140109
  4. EXJADE [Concomitant]
     Active Substance: DEFERASIROX
     Dosage: UNKNOWN
     Dates: start: 20140425
  5. METOHEXAL [Concomitant]
     Active Substance: METOPROLOL SUCCINATE
     Dosage: UNKNOWN
     Dates: start: 20130215
  6. INCB018424 [Suspect]
     Active Substance: RUXOLITINIB
     Dosage: 5 MG, TID
     Route: 048
     Dates: start: 20140718
  7. FLUVASTATIN [Concomitant]
     Active Substance: FLUVASTATIN SODIUM
     Dosage: UNKNOWN
     Dates: start: 20130215
  8. HAEMITON [Concomitant]
     Dosage: UNKNOWN
     Dates: start: 20130215
  9. INCB018424 [Suspect]
     Active Substance: RUXOLITINIB
     Indication: MYELOFIBROSIS
     Dosage: 15 MG,BID
     Dates: start: 20130111, end: 20130321
  10. INCB018424 [Suspect]
     Active Substance: RUXOLITINIB
     Dosage: 25 MG, QD
     Route: 048
     Dates: start: 20140110, end: 20140717
  11. INCB018424 [Suspect]
     Active Substance: RUXOLITINIB
     Dosage: 5 MG, QID
     Route: 048
     Dates: start: 20130405, end: 20130606
  12. INCB018424 [Suspect]
     Active Substance: RUXOLITINIB
     Dosage: 5 MG, BID
     Route: 048
     Dates: start: 20131011, end: 20131107
  13. RAMILICH [Concomitant]
     Active Substance: RAMIPRIL
     Dosage: UNKNOWN
     Dates: start: 19930101

REACTIONS (3)
  - Cholangitis sclerosing [Recovered/Resolved]
  - Cholestasis [Recovered/Resolved]
  - Papilloedema [Recovered/Resolved]

NARRATIVE: CASE EVENT DATE: 20130724
